FAERS Safety Report 7455099-5 (Version None)
Quarter: 2011Q2

REPORT INFORMATION
  Report Type: 
  Country: None (occurrence: None)
  Receive Date: 20110503
  Receipt Date: 20110418
  Transmission Date: 20111010
  Serious: Yes (Hospitalization, Other)
  Sender: FDA-Public Use
  Company Number: US-BAYER-2010-004368

PATIENT
  Age: 26 Year
  Sex: Female
  Weight: 136.5 kg

DRUGS (13)
  1. MULTI-VITAMINS [Concomitant]
  2. OCELLA [Suspect]
     Indication: PRODUCT USED FOR UNKNOWN INDICATION
     Dosage: UNK
     Route: 048
     Dates: start: 20020101, end: 20081201
  3. COUGH SYRUP [Concomitant]
  4. LEVAQUIN [Concomitant]
     Dosage: UNK
  5. ROBINUL [Concomitant]
  6. YASMIN [Suspect]
     Indication: PRODUCT USED FOR UNKNOWN INDICATION
     Dosage: UNK
     Route: 048
     Dates: start: 20020101, end: 20081201
  7. OXACILLIN [Concomitant]
     Dosage: UNK
  8. ZYRTEC [Concomitant]
  9. AZMACORT [Concomitant]
  10. YAZ [Suspect]
     Indication: PRODUCT USED FOR UNKNOWN INDICATION
     Dosage: UNK
     Route: 048
     Dates: start: 20020101
  11. VICODIN [Concomitant]
  12. ALBUTEROL [Concomitant]
  13. PREDNISONE [Concomitant]

REACTIONS (9)
  - BILIARY DYSKINESIA [None]
  - GALLBLADDER CHOLESTEROLOSIS [None]
  - GALLBLADDER DISORDER [None]
  - CHOLECYSTITIS [None]
  - PAIN [None]
  - PULMONARY EMBOLISM [None]
  - INJURY [None]
  - DEEP VEIN THROMBOSIS [None]
  - BILIARY COLIC [None]
